FAERS Safety Report 8200622-6 (Version None)
Quarter: 2012Q1

REPORT INFORMATION
  Report Type: 
  Country: None (occurrence: None)
  Receive Date: 20120223
  Receipt Date: 20120214
  Transmission Date: 20120608
  Serious: Yes (Hospitalization)
  Sender: FDA-Public Use
  Company Number: 2012031165

PATIENT
  Age: 66 Year
  Sex: Female
  Weight: 51.7101 kg

DRUGS (24)
  1. HIZENTRA [Suspect]
  2. NIACIN [Concomitant]
  3. NEXIUM [Concomitant]
  4. PROGRAF [Concomitant]
  5. FISH OIL (FISH OIL) [Concomitant]
  6. ZOFRAN [Concomitant]
  7. HIZENTRA [Suspect]
  8. NEFAZODONE HCL [Concomitant]
  9. LEFLUNOMIDE [Concomitant]
  10. VITAMIN D [Concomitant]
  11. WELCHOL [Concomitant]
  12. ZETIA [Concomitant]
  13. NORVASC [Concomitant]
  14. EPOGEN [Concomitant]
  15. CLONIDINE [Concomitant]
  16. CLONAZEPAM [Concomitant]
  17. HIZENTRA [Suspect]
     Indication: IMMUNODEFICIENCY COMMON VARIABLE
     Dosage: SEE IMAGE
     Route: 058
     Dates: start: 20101221
  18. HIZENTRA [Suspect]
     Indication: IMMUNODEFICIENCY COMMON VARIABLE
     Dosage: SEE IMAGE
     Route: 058
     Dates: start: 20101221
  19. HIZENTRA [Suspect]
     Indication: IMMUNODEFICIENCY COMMON VARIABLE
     Dosage: SEE IMAGE
     Route: 058
     Dates: start: 20101221
  20. LISINOPRIL [Concomitant]
  21. COREG [Concomitant]
  22. ZOLOFT [Concomitant]
  23. ZEMPLAR [Concomitant]
  24. ASPIRIN [Concomitant]

REACTIONS (3)
  - PAIN [None]
  - INFLUENZA [None]
  - TENDERNESS [None]
